FAERS Safety Report 4357537-3 (Version None)
Quarter: 2004Q2

REPORT INFORMATION
  Report Type: 
  Country: None (occurrence: None)
  Receive Date: 20040510
  Receipt Date: 20040428
  Transmission Date: 20050107
  Serious: Yes (Hospitalization)
  Sender: FDA-Public Use
  Company Number: GB-JNJFOC-20040406105

PATIENT
  Age: 67 Year
  Sex: Female

DRUGS (7)
  1. REMICADE [Suspect]
     Indication: RHEUMATOID ARTHRITIS
     Dosage: 210 MG; INTRAVENOUS
     Route: 042
     Dates: start: 20020902, end: 20030301
  2. AZATHIOPRINE [Concomitant]
  3. PREDNISOLONE [Concomitant]
  4. RISEDRONATE (RISEDRONATE SODIUM) [Concomitant]
  5. CELEBREX [Concomitant]
  6. FUROSEMIDE [Concomitant]
  7. CO-PROXAMOL (APOREX) [Concomitant]

REACTIONS (2)
  - HAEMATEMESIS [None]
  - TOXIC EPIDERMAL NECROLYSIS [None]
